FAERS Safety Report 8052341-7 (Version None)
Quarter: 2012Q1

REPORT INFORMATION
  Report Type: 
  Country: None (occurrence: None)
  Receive Date: 20120118
  Receipt Date: 20120117
  Transmission Date: 20120608
  Serious: Yes (Other)
  Sender: FDA-Public Use
  Company Number: US-PFIZER INC-2011277390

PATIENT
  Sex: Female

DRUGS (1)
  1. FLECTOR [Suspect]
     Indication: MUSCULOSKELETAL DISCOMFORT
     Dosage: UNK
     Route: 061
     Dates: start: 20111108

REACTIONS (2)
  - COLD SWEAT [None]
  - HYPERTENSION [None]
